FAERS Safety Report 9479150 (Version 1)
Quarter: 2013Q3

REPORT INFORMATION
  Report Type: Report from Study
  Country: US (occurrence: US)
  Receive Date: 20130827
  Receipt Date: 20130827
  Transmission Date: 20140515
  Serious: Yes (Other)
  Sender: FDA-Public Use
  Company Number: US-ABBOTT-13P-163-1136347-00

PATIENT
  Sex: Male
  Weight: 108.05 kg

DRUGS (8)
  1. ANDROGEL [Suspect]
     Indication: BLOOD TESTOSTERONE DECREASED
     Dosage: 1 PUMP DAILY
     Route: 061
     Dates: start: 201301, end: 2013
  2. ANDROGEL [Suspect]
     Dosage: 2 PUMPS DAILY
     Route: 061
     Dates: start: 2013, end: 2013
  3. ANDROGEL [Suspect]
     Dosage: 3 PUMPS DAILY
     Route: 061
  4. L-THYROXINE [Concomitant]
     Indication: HYPOTHYROIDISM
  5. MULTIVITAMIN [Concomitant]
     Indication: VITAMIN SUPPLEMENTATION
  6. FISH OIL [Concomitant]
     Indication: VITAMIN SUPPLEMENTATION
  7. ASPIRIN [Concomitant]
     Indication: PRODUCT USED FOR UNKNOWN INDICATION
  8. SAW PALMETO [Concomitant]
     Indication: VITAMIN SUPPLEMENTATION

REACTIONS (4)
  - Suicidal ideation [Not Recovered/Not Resolved]
  - Mood swings [Not Recovered/Not Resolved]
  - Depressed mood [Not Recovered/Not Resolved]
  - Depression [Not Recovered/Not Resolved]
